FAERS Safety Report 7995574-8 (Version None)
Quarter: 2011Q4

REPORT INFORMATION
  Report Type: 
  Country: None (occurrence: None)
  Receive Date: 20111220
  Receipt Date: 20111209
  Transmission Date: 20120403
  Serious: Yes (Life-Threatening, Disabling)
  Sender: FDA-Public Use
  Company Number: CA-MERCK-1112USA01161

PATIENT
  Age: 74 Year
  Sex: Female
  Weight: 67 kg

DRUGS (3)
  1. PRAVASTATIN SODIUM [Suspect]
     Route: 048
  2. SYNTHROID [Concomitant]
     Route: 048
  3. COZAAR [Suspect]
     Route: 048

REACTIONS (4)
  - DRUG INEFFECTIVE [None]
  - FEELING DRUNK [None]
  - SUICIDAL IDEATION [None]
  - BALANCE DISORDER [None]
